FAERS Safety Report 6273567-9 (Version None)
Quarter: 2009Q3

REPORT INFORMATION
  Report Type: 
  Country: None (occurrence: None)
  Receive Date: 20090715
  Receipt Date: 20090707
  Transmission Date: 20100115
  Serious: Yes (Death)
  Sender: FDA-Public Use
  Company Number: GXKR2009CH07856

PATIENT
  Age: 83 Year
  Sex: Male

DRUGS (6)
  1. SERTRALINE [Suspect]
     Dosage: 50 MG/DAY ORAL
     Route: 048
     Dates: end: 20090429
  2. ASPIRIN [Suspect]
     Dosage: 100 MG/DAY ORAL
     Route: 048
     Dates: end: 20090429
  3. AMLODIPINE (AMLODIPINE) [Concomitant]
  4. ENATEC (ENALAPRIL MALEATE) TABLET [Concomitant]
  5. PANTOPRAZOLE SODIUM [Concomitant]
  6. DISTRANEURIN (CLOMETHIAZOLE EDISILATE) [Concomitant]

REACTIONS (1)
  - CEREBRAL HAEMORRHAGE [None]
